FAERS Safety Report 6863845-4 (Version None)
Quarter: 2010Q3

REPORT INFORMATION
  Report Type: 
  Country: None (occurrence: None)
  Receive Date: 20100721
  Receipt Date: 20080312
  Transmission Date: 20110219
  Serious: Yes (Other)
  Sender: FDA-Public Use
  Company Number: US-PFIZER INC-2008023543

PATIENT
  Sex: Male
  Weight: 72.6 kg

DRUGS (5)
  1. CHANTIX [Suspect]
     Dates: start: 20071001, end: 20080103
  2. OTHER HYPNOTICS AND SEDATIVES [Concomitant]
  3. MIRTAZAPINE [Concomitant]
  4. ANTIEPILEPTICS [Concomitant]
  5. KEPPRA [Concomitant]

REACTIONS (5)
  - ABNORMAL DREAMS [None]
  - DEPRESSION [None]
  - FEELING ABNORMAL [None]
  - SUICIDAL BEHAVIOUR [None]
  - TREMOR [None]
